FAERS Safety Report 25007353 (Version 1)
Quarter: 2025Q1

REPORT INFORMATION
  Report Type: Spontaneous
  Country: US (occurrence: US)
  Receive Date: 20250225
  Receipt Date: 20250225
  Transmission Date: 20250409
  Serious: Yes (Other)
  Sender: SPECGX
  Company Number: US-SPECGX-T202500470

PATIENT
  Age: 82 Year
  Sex: Male

DRUGS (11)
  1. POSACONAZOLE [Suspect]
     Active Substance: POSACONAZOLE
     Indication: Prophylaxis
     Dosage: 300 MILLIGRAM, QD
     Route: 065
  2. AZACITIDINE [Suspect]
     Active Substance: AZACITIDINE
     Indication: Myelodysplastic syndrome
     Dosage: 160 MILLIGRAM, QD
     Route: 042
  3. OXYGEN [Suspect]
     Active Substance: OXYGEN
     Indication: Chronic obstructive pulmonary disease
     Route: 065
  4. OXYGEN [Suspect]
     Active Substance: OXYGEN
     Indication: Respiratory failure
  5. CEFEPIME [Suspect]
     Active Substance: CEFEPIME HYDROCHLORIDE
     Indication: Pseudomonas infection
     Dosage: 1 GRAM, Q8H
     Route: 042
  6. CEFEPIME [Suspect]
     Active Substance: CEFEPIME HYDROCHLORIDE
     Indication: Antibiotic prophylaxis
  7. CIPROFLOXACIN [Suspect]
     Active Substance: CIPROFLOXACIN
     Indication: Pseudomonas infection
     Route: 048
  8. CIPROFLOXACIN [Suspect]
     Active Substance: CIPROFLOXACIN
     Indication: Antibiotic prophylaxis
     Dosage: 500 MILLIGRAM, Q12H
     Route: 065
  9. ACYCLOVIR [Suspect]
     Active Substance: ACYCLOVIR
     Indication: Antibiotic prophylaxis
     Dosage: 400 MILLIGRAM, BID
     Route: 048
  10. ACYCLOVIR [Suspect]
     Active Substance: ACYCLOVIR
     Indication: Pneumonia
     Route: 048
  11. ACYCLOVIR [Suspect]
     Active Substance: ACYCLOVIR
     Indication: Bacteraemia

REACTIONS (8)
  - Bacteraemia [Recovered/Resolved]
  - Pneumonia [Recovered/Resolved]
  - Dyspnoea [Unknown]
  - Abscess [Unknown]
  - Condition aggravated [Unknown]
  - Corynebacterium infection [Unknown]
  - Body temperature increased [Unknown]
  - Productive cough [Unknown]
